FAERS Safety Report 23558563 (Version 1)
Quarter: 2024Q1

REPORT INFORMATION
  Report Type: Spontaneous
  Country: US (occurrence: None)
  Receive Date: 20240219
  Receipt Date: 20240219
  Transmission Date: 20240409
  Serious: Yes (Other)
  Sender: FDA-Public Use
  Company Number: None

PATIENT
  Sex: 0

DRUGS (1)
  1. HEMP [Suspect]
     Active Substance: HEMP

REACTIONS (1)
  - Product storage error [None]

NARRATIVE: CASE EVENT DATE: 20240219
